FAERS Safety Report 5657012-X (Version None)
Quarter: 2008Q1

REPORT INFORMATION
  Report Type: 
  Country: None (occurrence: None)
  Receive Date: 20080310
  Receipt Date: 20080229
  Transmission Date: 20080703
  Serious: Yes (Death)
  Sender: FDA-Public Use
  Company Number: FR-ROCHE-550511

PATIENT
  Age: 83 Year
  Sex: Female

DRUGS (7)
  1. ROCEPHIN [Suspect]
     Indication: URINARY TRACT INFECTION
     Dosage: FORM INJECTABLE SOLUTION. DRUG RECEIVED FOR ONE YEAR
     Route: 065
  2. PREVISCAN [Suspect]
     Indication: DRUG USE FOR UNKNOWN INDICATION
     Dosage: DRUG RECEIVED FOR 1 MONTH
     Route: 065
  3. MYCOSTATIN [Concomitant]
  4. LASIX [Concomitant]
     Route: 048
     Dates: end: 20070910
  5. DIAMICRON [Concomitant]
     Route: 048
     Dates: end: 20070910
  6. DETENSIEL [Concomitant]
     Route: 048
     Dates: end: 20070910
  7. CORDARONE [Concomitant]
     Route: 048
     Dates: end: 20070910

REACTIONS (2)
  - CEREBROVASCULAR ACCIDENT [None]
  - PROTHROMBIN TIME SHORTENED [None]
